FAERS Safety Report 4945532-2 (Version None)
Quarter: 2006Q1

REPORT INFORMATION
  Report Type: 
  Country: None (occurrence: None)
  Receive Date: 20060316
  Receipt Date: 20060307
  Transmission Date: 20060701
  Serious: Yes (Hospitalization, Disabling)
  Sender: FDA-Public Use
  Company Number: US-MERCK-0603USA01215

PATIENT
  Sex: Male

DRUGS (2)
  1. VIOXX [Suspect]
     Route: 048
     Dates: start: 20000112, end: 20040901
  2. BEXTRA [Suspect]
     Route: 048
     Dates: start: 20041001, end: 20041101

REACTIONS (1)
  - MYOCARDIAL INFARCTION [None]
